FAERS Safety Report 12339793 (Version 7)
Quarter: 2016Q3

REPORT INFORMATION
  Report Type: Report from Study
  Country: CA (occurrence: CA)
  Receive Date: 20160506
  Receipt Date: 20160913
  Transmission Date: 20161109
  Serious: Yes (Other)
  Sender: FDA-Public Use
  Company Number: CA-ROCHE-1606381

PATIENT
  Age: 59 Year
  Sex: Male

DRUGS (7)
  1. IRBESARTAN. [Concomitant]
     Active Substance: IRBESARTAN
     Indication: HYPERTENSION
  2. ACETAMINOPHEN. [Concomitant]
     Active Substance: ACETAMINOPHEN
     Indication: PREMEDICATION
     Route: 048
     Dates: start: 20150625, end: 20160628
  3. PREDNISONE. [Concomitant]
     Active Substance: PREDNISONE
  4. DIPHENHYDRAMINE. [Concomitant]
     Active Substance: DIPHENHYDRAMINE
     Indication: PREMEDICATION
     Route: 048
     Dates: start: 20150625, end: 20160628
  5. RITUXAN [Suspect]
     Active Substance: RITUXIMAB
     Indication: RHEUMATOID ARTHRITIS
     Route: 042
     Dates: start: 20150625, end: 20160628
  6. METHYLPREDNISOLONE. [Concomitant]
     Active Substance: METHYLPREDNISOLONE
     Indication: PREMEDICATION
     Route: 042
     Dates: start: 20150625, end: 20160628
  7. RITUXAN [Suspect]
     Active Substance: RITUXIMAB
     Dosage: DAY 1 DAY 15
     Route: 042
     Dates: start: 20160115

REACTIONS (19)
  - Dyspnoea exertional [Unknown]
  - Oxygen saturation decreased [Unknown]
  - Acne [Recovering/Resolving]
  - Musculoskeletal pain [Unknown]
  - Musculoskeletal disorder [Recovering/Resolving]
  - Insomnia [Not Recovered/Not Resolved]
  - Pruritus [Not Recovered/Not Resolved]
  - Blood pressure increased [Unknown]
  - Rash generalised [Unknown]
  - Drug ineffective [Unknown]
  - Dyspnoea [Unknown]
  - Back pain [Unknown]
  - Arthralgia [Not Recovered/Not Resolved]
  - Hypertension [Not Recovered/Not Resolved]
  - Cough [Unknown]
  - Papule [Not Recovered/Not Resolved]
  - Blood pressure increased [Unknown]
  - Pain [Unknown]
  - Arthritis [Not Recovered/Not Resolved]

NARRATIVE: CASE EVENT DATE: 20150628
